FAERS Safety Report 9198135 (Version 1)
Quarter: 2013Q1

REPORT INFORMATION
  Report Type: Spontaneous
  Country: US (occurrence: US)
  Receive Date: 20130329
  Receipt Date: 20130329
  Transmission Date: 20140127
  Serious: Yes (Other)
  Sender: FDA-Public Use
  Company Number: US-ELI_LILLY_AND_COMPANY-US201303006126

PATIENT
  Age: 21 Year
  Sex: Female

DRUGS (2)
  1. CYMBALTA [Suspect]
     Indication: DEPRESSION
     Dosage: 60 MG, QD
     Dates: start: 201211
  2. ALCOHOL [Concomitant]

REACTIONS (4)
  - Loss of consciousness [Unknown]
  - Hangover [Unknown]
  - Vomiting [Unknown]
  - Alcohol poisoning [Unknown]
